FAERS Safety Report 10455430 (Version 1)
Quarter: 2014Q3

REPORT INFORMATION
  Report Type: Spontaneous
  Country: US (occurrence: None)
  Receive Date: 20140915
  Receipt Date: 20140915
  Transmission Date: 20150326
  Serious: Yes (Other)
  Sender: FDA-Public Use
  Company Number: None

PATIENT
  Age: 42 Year
  Sex: Female
  Weight: 78.47 kg

DRUGS (1)
  1. LOSARTAN POTASSIUM 25MG TABLETS [Suspect]
     Active Substance: LOSARTAN POTASSIUM
     Indication: HYPERTENSION
     Dosage: 1 PILL ONCE DAILY TAKEN BY MOUTH
     Route: 048
     Dates: start: 20130217, end: 20140822

REACTIONS (5)
  - Hepatic enzyme increased [None]
  - Autoimmune hepatitis [None]
  - Ventricular extrasystoles [None]
  - Granulomatous liver disease [None]
  - Palpitations [None]

NARRATIVE: CASE EVENT DATE: 20140812
